FAERS Safety Report 7932643-2 (Version None)
Quarter: 2011Q4

REPORT INFORMATION
  Report Type: 
  Country: None (occurrence: None)
  Receive Date: 20111122
  Receipt Date: 20111116
  Transmission Date: 20120403
  Serious: Yes (Hospitalization, Other)
  Sender: FDA-Public Use
  Company Number: US-BRISTOL-MYERS SQUIBB COMPANY-16125395

PATIENT
  Age: 56 Year
  Sex: Male

DRUGS (5)
  1. COUMADIN [Suspect]
     Indication: PULMONARY EMBOLISM
     Dates: start: 20110821, end: 20110904
  2. OMNICEF [Concomitant]
     Route: 048
  3. IPILIMUMAB [Suspect]
     Indication: PROSTATE CANCER
     Route: 042
     Dates: start: 20110607, end: 20110628
  4. LUPRON [Suspect]
     Indication: PROSTATE CANCER
     Route: 051
     Dates: start: 20110524, end: 20110524
  5. PROTONIX [Concomitant]
     Route: 048

REACTIONS (7)
  - CHILLS [None]
  - GASTROINTESTINAL HAEMORRHAGE [None]
  - FATIGUE [None]
  - ANAEMIA [None]
  - PULMONARY EMBOLISM [None]
  - PNEUMONIA [None]
  - OCCULT BLOOD POSITIVE [None]
